FAERS Safety Report 4879229-4 (Version None)
Quarter: 2006Q1

REPORT INFORMATION
  Report Type: 
  Country: None (occurrence: None)
  Receive Date: 20060112
  Receipt Date: 20051208
  Transmission Date: 20060701
  Serious: Yes (Other)
  Sender: FDA-Public Use
  Company Number: US-ABBOTT-05P-163-0319075-00

PATIENT
  Sex: Male

DRUGS (2)
  1. LEXAPRO [Suspect]
     Indication: DRUG EXPOSURE DURING PREGNANCY
  2. PRENATAL VITAMINS [Concomitant]
     Indication: DRUG EXPOSURE DURING PREGNANCY
     Dates: end: 20051029

REACTIONS (10)
  - DRUG EXPOSURE DURING PREGNANCY [None]
  - DRUG EXPOSURE VIA BREAST MILK [None]
  - HAEMOGLOBIN DECREASED [None]
  - JAUNDICE [None]
  - JAUNDICE NEONATAL [None]
  - NEONATAL DISORDER [None]
  - NEONATAL TACHYPNOEA [None]
  - PLATELET COUNT INCREASED [None]
  - SEPSIS NEONATAL [None]
  - TACHYPNOEA [None]
